FAERS Safety Report 7084790-8 (Version None)
Quarter: 2010Q4

REPORT INFORMATION
  Report Type: 
  Country: None (occurrence: None)
  Receive Date: 20101105
  Receipt Date: 20101027
  Transmission Date: 20110411
  Serious: Yes (Hospitalization)
  Sender: FDA-Public Use
  Company Number: US-BIOGENIDEC-2010BI035493

PATIENT
  Age: 47 Year
  Sex: Male

DRUGS (3)
  1. AVONEX [Suspect]
     Indication: MULTIPLE SCLEROSIS
     Route: 030
     Dates: start: 20070901
  2. AVONEX [Suspect]
     Route: 030
  3. AVONEX [Suspect]
     Route: 030
     Dates: start: 20060101

REACTIONS (3)
  - DRUG ABUSE [None]
  - METABOLIC ENCEPHALOPATHY [None]
  - TOXIC ENCEPHALOPATHY [None]
